FAERS Safety Report 5332472-2 (Version None)
Quarter: 2007Q2

REPORT INFORMATION
  Report Type: 
  Country: None (occurrence: None)
  Receive Date: 20070523
  Receipt Date: 20070517
  Transmission Date: 20071010
  Serious: Yes (Other)
  Sender: FDA-Public Use
  Company Number: JP-JNJFOC-20070504764

PATIENT
  Age: 30 Year
  Sex: Female

DRUGS (9)
  1. RISPERDAL [Suspect]
     Indication: AGITATION
     Dosage: 1-4 MG PER DAY AS NEEDED
     Route: 048
  2. CERCINE [Concomitant]
     Route: 048
  3. PROMETHAZINE HCL [Concomitant]
     Route: 048
  4. ARTANE [Concomitant]
     Route: 048
  5. DEPAKENE [Concomitant]
     Route: 048
  6. TETRAMIDE [Concomitant]
     Route: 048
  7. ROHYPNOL [Concomitant]
  8. LANDSEN [Concomitant]
     Route: 048
  9. HALCION [Concomitant]
     Route: 048

REACTIONS (3)
  - HALLUCINATION, AUDITORY [None]
  - MUSCLE TWITCHING [None]
  - TREMOR [None]
